FAERS Safety Report 4397817-9 (Version None)
Quarter: 2004Q2

REPORT INFORMATION
  Report Type: 
  Country: None (occurrence: None)
  Receive Date: 20040621
  Receipt Date: 20040308
  Transmission Date: 20050107
  Serious: Yes (Death)
  Sender: FDA-Public Use
  Company Number: USA-2004-0013635

PATIENT
  Age: 30 Year
  Sex: Male
  Weight: 131.5 kg

DRUGS (7)
  1. OXYCODONE HCL [Suspect]
  2. HYDROCODONE BITARTRATE [Suspect]
  3. ALPRAZOLAM [Suspect]
  4. OXAZEPAM [Suspect]
  5. LORAZEPAM [Suspect]
  6. TEMAZEPAM [Suspect]
  7. ACETAMINOPHEN [Suspect]

REACTIONS (1)
  - ACCIDENTAL OVERDOSE [None]
